FAERS Safety Report 9373667 (Version 1)
Quarter: 2013Q2

REPORT INFORMATION
  Report Type: Report from Study
  Country: DE (occurrence: DE)
  Receive Date: 20130627
  Receipt Date: 20130627
  Transmission Date: 20140414
  Serious: Yes (Death)
  Sender: FDA-Public Use
  Company Number: PHHO2003DE017532

PATIENT
  Sex: 0

DRUGS (8)
  1. SANDOSTATIN LAR [Suspect]
     Indication: NEUROENDOCRINE TUMOUR
     Dosage: UNK
     Dates: start: 20010821, end: 20021217
  2. SANDOSTATIN LAR [Suspect]
     Indication: NEUROENDOCRINE TUMOUR
     Dosage: UNK
  3. OXAZEPAM [Concomitant]
  4. NITRENDIPINE [Concomitant]
  5. URTICA EXTRACT [Concomitant]
  6. ALLOPURINOL [Concomitant]
  7. VALERIANA OFFICINALIS [Concomitant]
  8. PANCREATIN [Concomitant]

REACTIONS (1)
  - Cerebrovascular accident [Fatal]
